FAERS Safety Report 9332750 (Version 6)
Quarter: 2014Q1

REPORT INFORMATION
  Report Type: Report from Study
  Country: US (occurrence: US)
  Receive Date: 20130606
  Receipt Date: 20140123
  Transmission Date: 20141002
  Serious: Yes (Life-Threatening, Disabling, Other)
  Sender: FDA-Public Use
  Company Number: US-ACTELION-A-US2013-83961

PATIENT
  Age: 56 Year
  Sex: Male

DRUGS (1)
  1. TRACLEER [Suspect]
     Indication: PULMONARY HYPERTENSION
     Dosage: UNK
     Route: 048

REACTIONS (16)
  - Metastases to spine [Unknown]
  - Terminal state [Unknown]
  - Pulmonary mass [Not Recovered/Not Resolved]
  - Squamous cell carcinoma of lung [Not Recovered/Not Resolved]
  - Radiotherapy [Unknown]
  - Chemotherapy [Unknown]
  - Abdominal pain [Not Recovered/Not Resolved]
  - Sciatic nerve neuropathy [Unknown]
  - Sleep apnoea syndrome [Unknown]
  - Local swelling [Unknown]
  - Poor quality sleep [Unknown]
  - Back disorder [Unknown]
  - Back pain [Unknown]
  - Fatigue [Unknown]
  - Oedema [Unknown]
  - Dyspnoea [Unknown]
